FAERS Safety Report 9648651 (Version 2)
Quarter: 2014Q1

REPORT INFORMATION
  Report Type: Report from Study
  Country: GB (occurrence: GB)
  Receive Date: 20131028
  Receipt Date: 20140204
  Transmission Date: 20141002
  Serious: Yes (Death, Hospitalization)
  Sender: FDA-Public Use
  Company Number: GB-ROCHE-1294868

PATIENT
  Sex: Female
  Weight: 72 kg

DRUGS (2)
  1. RITUXIMAB [Suspect]
     Indication: RHEUMATOID ARTHRITIS
     Route: 065
     Dates: start: 20110527
  2. HYDROXYCHLOROQUINE [Concomitant]

REACTIONS (4)
  - Cardiac failure congestive [Fatal]
  - Heart valve incompetence [Fatal]
  - Interstitial lung disease [Fatal]
  - Lower respiratory tract infection [Unknown]
